FAERS Safety Report 20976771 (Version 1)
Quarter: 2022Q2

REPORT INFORMATION
  Report Type: Report from Study
  Country: ES (occurrence: ES)
  Receive Date: 20220617
  Receipt Date: 20220617
  Transmission Date: 20220721
  Serious: Yes (Hospitalization)
  Sender: FDA-Public Use
  Company Number: ES-TAKEDA-ES201506137

PATIENT
  Age: 14 Year
  Sex: Male

DRUGS (25)
  1. IDURSULFASE [Suspect]
     Active Substance: IDURSULFASE
     Indication: Mucopolysaccharidosis II
     Dosage: 0.53 MILLIGRAM/KILOGRAM, 1/WEEK
     Route: 041
     Dates: start: 20061213
  2. IDURSULFASE [Suspect]
     Active Substance: IDURSULFASE
     Dosage: 0.42 MILLIGRAM/KILOGRAM, 1/WEEK
     Route: 041
     Dates: start: 20080111
  3. IDURSULFASE [Suspect]
     Active Substance: IDURSULFASE
     Dosage: 0.42 MILLIGRAM/KILOGRAM, 1/WEEK
     Route: 041
     Dates: start: 20140703
  4. IBUPROFEN [Concomitant]
     Active Substance: IBUPROFEN
     Indication: Pain
     Dosage: UNK
     Route: 048
     Dates: start: 20080122, end: 20080125
  5. IBUPROFEN [Concomitant]
     Active Substance: IBUPROFEN
     Indication: Pyrexia
     Dosage: UNK
     Route: 048
     Dates: start: 20091228, end: 20100102
  6. IBUPROFEN [Concomitant]
     Active Substance: IBUPROFEN
     Indication: Abdominal pain upper
     Dosage: UNK
     Route: 048
     Dates: start: 20160628, end: 20161220
  7. IBUPROFEN [Concomitant]
     Active Substance: IBUPROFEN
     Indication: Tonsillitis
     Dosage: UNK
     Route: 048
     Dates: start: 20170614, end: 201706
  8. IBUPROFEN [Concomitant]
     Active Substance: IBUPROFEN
     Indication: Nasopharyngitis
     Dosage: UNK
     Route: 048
     Dates: start: 20180109, end: 20180116
  9. IBUPROFEN [Concomitant]
     Active Substance: IBUPROFEN
     Dosage: UNK
     Route: 065
     Dates: start: 20181229, end: 2019
  10. IBUPROFEN [Concomitant]
     Active Substance: IBUPROFEN
     Dosage: UNK
     Route: 048
     Dates: start: 20190714, end: 201907
  11. URSODIOL [Concomitant]
     Active Substance: URSODIOL
     Indication: Lithiasis
     Dosage: UNK
     Route: 048
     Dates: start: 200806
  12. CLOXACILLIN [Concomitant]
     Active Substance: CLOXACILLIN
     Indication: Infection
     Dosage: UNK
     Route: 042
     Dates: start: 20091228, end: 20100109
  13. CLOXACILLIN [Concomitant]
     Active Substance: CLOXACILLIN
     Dosage: UNK
     Route: 042
     Dates: start: 20100504, end: 20100514
  14. ENALAPRIL [Concomitant]
     Active Substance: ENALAPRIL
     Indication: Cardiovascular disorder
     Dosage: UNK
     Route: 048
     Dates: start: 20100115
  15. RAMIPRIL [Concomitant]
     Active Substance: RAMIPRIL
     Indication: Myocardial infarction
     Dosage: UNK
     Route: 048
     Dates: start: 20130612
  16. VITAMIN D [Concomitant]
     Active Substance: VITAMIN D NOS
     Indication: Vitamin D deficiency
     Dosage: UNK
     Route: 048
     Dates: start: 20161220, end: 20170704
  17. FOLIC ACID [Concomitant]
     Active Substance: FOLIC ACID
     Indication: Folate deficiency
     Dosage: UNK
     Route: 048
     Dates: start: 20161220, end: 20170704
  18. CEFUROXIME [Concomitant]
     Active Substance: CEFUROXIME
     Indication: Ear pain
     Dosage: UNK
     Route: 048
     Dates: start: 20170110, end: 201701
  19. CEFUROXIME [Concomitant]
     Active Substance: CEFUROXIME
     Indication: Ear infection
     Dosage: UNK
     Route: 048
     Dates: start: 20190714, end: 20190721
  20. BACTROBAN [Concomitant]
     Active Substance: MUPIROCIN\MUPIROCIN CALCIUM
     Indication: Ear pain
     Dosage: UNK
     Dates: start: 20170110, end: 201701
  21. ACETAMINOPHEN [Concomitant]
     Active Substance: ACETAMINOPHEN
     Indication: Nasopharyngitis
     Dosage: UNK
     Route: 048
     Dates: start: 20180109, end: 20180116
  22. ACETYLCYSTEINE [Concomitant]
     Active Substance: ACETYLCYSTEINE
     Dosage: UNK
     Route: 065
     Dates: start: 20181229, end: 2019
  23. Aceoto plus [Concomitant]
     Indication: Ear infection
     Dosage: UNK
     Route: 050
     Dates: start: 20190721
  24. GENTAMICIN [Concomitant]
     Active Substance: GENTAMICIN
     Indication: Otitis media acute
     Dosage: UNK
     Route: 050
     Dates: start: 20200627, end: 20200707
  25. DEFLAZACORT [Concomitant]
     Active Substance: DEFLAZACORT
     Indication: Otitis media acute
     Dosage: UNK
     Route: 048
     Dates: start: 20200627, end: 20200630

REACTIONS (1)
  - Inguinal hernia [Recovered/Resolved]

NARRATIVE: CASE EVENT DATE: 20080121
